FAERS Safety Report 9267444 (Version 1)
Quarter: 2013Q2

REPORT INFORMATION
  Report Type: Spontaneous
  Country: US (occurrence: US)
  Receive Date: 20130502
  Receipt Date: 20130502
  Transmission Date: 20140414
  Serious: Yes (Death, Hospitalization)
  Sender: FDA-Public Use
  Company Number: US-GLAXOSMITHKLINE-A0713044A

PATIENT
  Age: 61 Year
  Sex: Female

DRUGS (11)
  1. AVANDIA [Suspect]
     Indication: TYPE 2 DIABETES MELLITUS
     Dosage: 8MG PER DAY
     Route: 048
     Dates: start: 1999, end: 20061017
  2. ALBUTEROL [Concomitant]
  3. THEOPHYLLINE [Concomitant]
  4. NEURONTIN [Concomitant]
  5. LORTAB [Concomitant]
  6. VICODIN [Concomitant]
  7. TOBRADEX [Concomitant]
  8. PRED FORTE [Concomitant]
  9. Z PACK [Concomitant]
  10. KLOR-CON [Concomitant]
  11. TESSALON [Concomitant]

REACTIONS (6)
  - Chronic obstructive pulmonary disease [Fatal]
  - Myocardial infarction [Unknown]
  - Cardiac failure congestive [Unknown]
  - Cardiogenic shock [Unknown]
  - Pulmonary hypertension [Unknown]
  - Arteriosclerosis coronary artery [Unknown]
